FAERS Safety Report 25032138 (Version 1)
Quarter: 2025Q1

REPORT INFORMATION
  Report Type: Spontaneous
  Country: CN (occurrence: CN)
  Receive Date: 20250303
  Receipt Date: 20250303
  Transmission Date: 20250409
  Serious: Yes (Other)
  Sender: PFIZER
  Company Number: CN-PFIZER INC-PV202500024593

PATIENT
  Age: 9 Year
  Sex: Female
  Weight: 30 kg

DRUGS (2)
  1. TIGECYCLINE [Suspect]
     Active Substance: TIGECYCLINE
     Indication: Central nervous system infection
     Dosage: 42 MG, 2X/DAY
     Route: 041
     Dates: start: 20241209, end: 20250113
  2. TIGECYCLINE [Suspect]
     Active Substance: TIGECYCLINE
     Indication: Meningitis bacterial

REACTIONS (2)
  - Coagulopathy [Recovering/Resolving]
  - Haematuria [Recovering/Resolving]

NARRATIVE: CASE EVENT DATE: 20250113
